FAERS Safety Report 14880333 (Version 1)
Quarter: 2018Q2

REPORT INFORMATION
  Report Type: Spontaneous
  Country: US (occurrence: US)
  Receive Date: 20180425
  Receipt Date: 20180425
  Transmission Date: 20180711
  Serious: Yes (Hospitalization)
  Sender: FDA-Public Use
  Company Number: None

PATIENT
  Age: 60 Year
  Sex: Female
  Weight: 74.7 kg

DRUGS (1)
  1. VECTIBIX [Suspect]
     Active Substance: PANITUMUMAB
     Indication: COLON CANCER
     Route: 042
     Dates: start: 20180327

REACTIONS (4)
  - Dyspnoea [None]
  - Pyrexia [None]
  - Tachycardia [None]
  - Infection [None]

NARRATIVE: CASE EVENT DATE: 20180327
